FAERS Safety Report 7467553-0 (Version None)
Quarter: 2011Q2

REPORT INFORMATION
  Report Type: 
  Country: None (occurrence: None)
  Receive Date: 20110509
  Receipt Date: 20110411
  Transmission Date: 20111010
  Serious: Yes (Hospitalization, Other)
  Sender: FDA-Public Use
  Company Number: US-BAYER-201040953NA

PATIENT
  Age: 22 Year
  Sex: Female
  Weight: 61 kg

DRUGS (3)
  1. YASMIN [Suspect]
     Indication: ACNE
     Dates: start: 20060201, end: 20081201
  2. DROSPIRENONE AND ETHINYL ESTRADIOL [Suspect]
     Indication: ACNE
     Dates: start: 20081201
  3. YASMIN [Suspect]
     Dates: start: 20090101, end: 20090201

REACTIONS (17)
  - INTRACRANIAL VENOUS SINUS THROMBOSIS [None]
  - PUPIL FIXED [None]
  - ABSCESS [None]
  - MUSCULAR WEAKNESS [None]
  - HEADACHE [None]
  - PAIN [None]
  - INTRACRANIAL PRESSURE INCREASED [None]
  - UNRESPONSIVE TO STIMULI [None]
  - INTRAVENTRICULAR HAEMORRHAGE [None]
  - ANXIETY [None]
  - RESPIRATORY FAILURE [None]
  - VOCAL CORD PARALYSIS [None]
  - ANAEMIA [None]
  - BRAIN OEDEMA [None]
  - EMOTIONAL DISTRESS [None]
  - SUBDURAL HAEMATOMA [None]
  - HAEMORRHAGE [None]
